FAERS Safety Report 4314475-X (Version None)
Quarter: 2004Q1

REPORT INFORMATION
  Report Type: 
  Country: None (occurrence: None)
  Receive Date: 20040309
  Receipt Date: 20040224
  Transmission Date: 20041129
  Serious: Yes (Other)
  Sender: FDA-Public Use
  Company Number: PHBS2004RU02795

PATIENT
  Age: 34 Year
  Sex: Female

DRUGS (1)
  1. REGESTRONE [Suspect]
     Dosage: 5 MG/DAY
     Route: 048
     Dates: start: 20040128, end: 20040201

REACTIONS (5)
  - ABDOMINAL PAIN LOWER [None]
  - ABORTION INDUCED [None]
  - COMPLICATIONS OF MATERNAL EXPOSURE TO THERAPEUTIC DRUGS [None]
  - DRUG EXPOSURE DURING PREGNANCY [None]
  - PREGNANCY [None]
